APPROVED DRUG PRODUCT: ALPRAZOLAM
Active Ingredient: ALPRAZOLAM
Strength: 0.25MG
Dosage Form/Route: TABLET;ORAL
Application: A074199 | Product #001
Applicant: ROXANE LABORATORIES INC
Approved: Oct 19, 1993 | RLD: No | RS: No | Type: DISCN